FAERS Safety Report 14112133 (Version 1)
Quarter: 2017Q4

REPORT INFORMATION
  Report Type: Spontaneous
  Country: IT (occurrence: IT)
  Receive Date: 20171020
  Receipt Date: 20171020
  Transmission Date: 20180321
  Serious: Yes (Other)
  Sender: FDA-Public Use
  Company Number: IT-MYLANLABS-2017M1065769

PATIENT
  Age: 74 Year
  Sex: Female

DRUGS (3)
  1. GEMCITABINE [Suspect]
     Active Substance: GEMCITABINE\GEMCITABINE HYDROCHLORIDE
     Dosage: 1000 MG PER SQUARE METER, ADMINISTERED ON DAYS 1, 8, AND 15 EVERY 4 WEEKS.
     Route: 065
     Dates: start: 201604, end: 201702
  2. GEMCITABINE [Suspect]
     Active Substance: GEMCITABINE\GEMCITABINE HYDROCHLORIDE
     Indication: CHOLANGIOCARCINOMA
     Dosage: 1000 MG PER SQUARE METER, RECEIVED ON DAYS 1 AND 8 EVERY 3W
     Route: 065
     Dates: start: 201511, end: 201601
  3. CISPLATIN. [Suspect]
     Active Substance: CISPLATIN
     Indication: CHOLANGIOCARCINOMA
     Dosage: 25 MG PER SQUARE METER OF BODY SURFACE AREA RECEIVED ON DAYS 1 AND 8 EVERY 3W; 6 CYCLES
     Route: 065
     Dates: start: 201511, end: 201601

REACTIONS (5)
  - Nausea [Unknown]
  - Thrombocytopenia [Unknown]
  - Vomiting [Unknown]
  - Constipation [Unknown]
  - Lymphoedema [Unknown]
